FAERS Safety Report 7395558-7 (Version None)
Quarter: 2011Q2

REPORT INFORMATION
  Report Type: 
  Country: None (occurrence: None)
  Receive Date: 20110405
  Receipt Date: 20110330
  Transmission Date: 20111010
  Serious: Yes (Other)
  Sender: FDA-Public Use
  Company Number: CA-ROCHE-746997

PATIENT
  Sex: Female

DRUGS (11)
  1. VITAMIN D [Concomitant]
  2. LOPRESSOR [Concomitant]
  3. BENADRYL [Concomitant]
     Indication: PREMEDICATION
     Dosage: ONCE
     Route: 048
     Dates: start: 20101222, end: 20101222
  4. CALCIUM [Concomitant]
  5. SOLU-MEDROL [Concomitant]
     Dosage: FREQUENCY: ONCE
     Route: 042
     Dates: start: 20110316, end: 20110316
  6. BEVACIZUMAB [Suspect]
     Dosage: FORM INFUSION
     Route: 042
     Dates: start: 20101117
  7. ALTACE [Concomitant]
  8. ASPIRIN [Concomitant]
  9. LIPITOR [Concomitant]
  10. SOLU-MEDROL [Concomitant]
     Indication: PREMEDICATION
     Dosage: ONCE
     Route: 042
     Dates: start: 20101222, end: 20101222
  11. BEVACIZUMAB [Suspect]
     Route: 042

REACTIONS (17)
  - LIVER DISORDER [None]
  - MUSCULOSKELETAL PAIN [None]
  - NASOPHARYNGITIS [None]
  - RED CELL DISTRIBUTION WIDTH INCREASED [None]
  - BLOOD CALCIUM DECREASED [None]
  - HYPERTENSION [None]
  - ALANINE AMINOTRANSFERASE INCREASED [None]
  - BLOOD ALKALINE PHOSPHATASE INCREASED [None]
  - BLOOD BILIRUBIN INCREASED [None]
  - COUGH [None]
  - BLOOD ALBUMIN DECREASED [None]
  - BLOOD UREA DECREASED [None]
  - BLOOD POTASSIUM DECREASED [None]
  - CONSTIPATION [None]
  - MEAN CELL VOLUME INCREASED [None]
  - ASPARTATE AMINOTRANSFERASE INCREASED [None]
  - FATIGUE [None]
